FAERS Safety Report 18655742 (Version 3)
Quarter: 2023Q4

REPORT INFORMATION
  Report Type: Spontaneous
  Country: US (occurrence: US)
  Receive Date: 20201223
  Receipt Date: 20231005
  Transmission Date: 20240110
  Serious: Yes (Other)
  Sender: FDA-Public Use
  Company Number: US-GILEAD-2020-0509331

PATIENT
  Age: 53 Year
  Sex: Male

DRUGS (39)
  1. ATRIPLA [Suspect]
     Active Substance: EFAVIRENZ\EMTRICITABINE\TENOFOVIR DISOPROXIL FUMARATE
     Indication: HIV infection
     Dosage: UNK
     Route: 048
     Dates: start: 2007
  2. ATRIPLA [Suspect]
     Active Substance: EFAVIRENZ\EMTRICITABINE\TENOFOVIR DISOPROXIL FUMARATE
     Dosage: UNK
     Route: 048
     Dates: start: 20070108, end: 20110902
  3. INTELENCE [Concomitant]
     Active Substance: ETRAVIRINE
     Indication: HIV infection
  4. NORVIR [Concomitant]
     Active Substance: RITONAVIR
     Indication: HIV infection
  5. PREZISTA [Concomitant]
     Active Substance: DARUNAVIR ETHANOLATE
     Indication: HIV infection
  6. RETROVIR [Concomitant]
     Active Substance: ZIDOVUDINE
     Indication: HIV infection
  7. ACYCLOVIR [Concomitant]
     Active Substance: ACYCLOVIR
     Indication: HIV infection
  8. ALLOPURINOL [Concomitant]
     Active Substance: ALLOPURINOL
     Indication: Gout
  9. LAMIVUDINE [Concomitant]
     Active Substance: LAMIVUDINE
     Indication: Antiviral treatment
  10. LISINOPRIL [Concomitant]
     Active Substance: LISINOPRIL
     Indication: Blood pressure measurement
  11. METOPROLOL [Concomitant]
     Active Substance: METOPROLOL
     Indication: Blood pressure measurement
  12. RITONAVIR [Concomitant]
     Active Substance: RITONAVIR
     Indication: HIV infection
  13. TADALAFIL [Concomitant]
     Active Substance: TADALAFIL
     Indication: Prostatitis
  14. VITAMIN E [Concomitant]
     Active Substance: .ALPHA.-TOCOPHEROL
  15. ZIDOVUDINE [Concomitant]
     Active Substance: ZIDOVUDINE
     Indication: Antiviral treatment
  16. NOROXIN [Concomitant]
     Active Substance: NORFLOXACIN
     Indication: Prostatitis
  17. ATENOLOL [Concomitant]
     Active Substance: ATENOLOL
     Indication: Hypertension
  18. AMLODIPINE [Concomitant]
     Active Substance: AMLODIPINE BESYLATE
     Indication: Hypertension
  19. CELEBREX [Concomitant]
     Active Substance: CELECOXIB
     Indication: Trigger finger
  20. MELOXICAM [Concomitant]
     Active Substance: MELOXICAM
     Indication: Trigger finger
  21. MEDROL [Concomitant]
     Active Substance: METHYLPREDNISOLONE
     Indication: Hip fracture
  22. METHYLPREDNISOLONE [Concomitant]
     Active Substance: METHYLPREDNISOLONE
     Indication: Skeletal injury
  23. TAMSULOSIN [Concomitant]
     Active Substance: TAMSULOSIN
  24. LYRICA [Concomitant]
     Active Substance: PREGABALIN
     Indication: Sleep disorder
  25. TRAZODONE [Concomitant]
     Active Substance: TRAZODONE HYDROCHLORIDE
     Indication: Sleep disorder
  26. PROPECIA [Concomitant]
     Active Substance: FINASTERIDE
     Indication: Prostatitis
  27. VALTREX [Concomitant]
     Active Substance: VALACYCLOVIR HYDROCHLORIDE
     Indication: Ear infection
  28. URO-MP [Concomitant]
     Active Substance: HYOSCYAMINE SULFATE\METHENAMINE\METHYLENE BLUE\PHENYL SALICYLATE\SODIUM PHOSPHATE, MONOBASIC, MONOHY
     Indication: Prostatitis
  29. DOXEPIN [Concomitant]
     Active Substance: DOXEPIN
     Indication: Sleep disorder
  30. MYRBETRIQ [Concomitant]
     Active Substance: MIRABEGRON
     Indication: Prostatitis
  31. VESICARE [Concomitant]
     Active Substance: SOLIFENACIN SUCCINATE
     Indication: Prostatitis
  32. DARIFENACIN [Concomitant]
     Active Substance: DARIFENACIN
     Indication: Prostatitis
  33. OXYBUTYNIN [Concomitant]
     Active Substance: OXYBUTYNIN
     Indication: Prostatitis
  34. COMBIVIR [Concomitant]
     Active Substance: LAMIVUDINE\ZIDOVUDINE
  35. EPZICOM [Concomitant]
     Active Substance: ABACAVIR SULFATE\LAMIVUDINE
  36. SUSTIVA [Concomitant]
     Active Substance: EFAVIRENZ
  37. VIDEX [Concomitant]
     Active Substance: DIDANOSINE
  38. ZIAGEN [Concomitant]
     Active Substance: ABACAVIR SULFATE
  39. ATORVASTATIN [Concomitant]
     Active Substance: ATORVASTATIN

REACTIONS (10)
  - Multiple fractures [Recovered/Resolved]
  - Foot fracture [Not Recovered/Not Resolved]
  - Fracture [Not Recovered/Not Resolved]
  - Osteoporosis [Not Recovered/Not Resolved]
  - Bone density decreased [Unknown]
  - Pain [Unknown]
  - Emotional distress [Unknown]
  - Anxiety [Unknown]
  - Anhedonia [Unknown]
  - Osteopenia [Not Recovered/Not Resolved]

NARRATIVE: CASE EVENT DATE: 20090801
